FAERS Safety Report 9478466 (Version 1)
Quarter: 2013Q3

REPORT INFORMATION
  Report Type: Report from Study
  Country: DE (occurrence: DE)
  Receive Date: 20130827
  Receipt Date: 20130827
  Transmission Date: 20140515
  Serious: Yes (Hospitalization)
  Sender: FDA-Public Use
  Company Number: DE-ROCHE-1266625

PATIENT
  Age: 59 Year
  Sex: Female

DRUGS (9)
  1. RITUXIMAB [Suspect]
     Indication: RHEUMATOID ARTHRITIS
     Dosage: LAST RITUXIMAB DOSAGES- 1000 MG
     Route: 065
     Dates: start: 20070418
  2. RITUXIMAB [Suspect]
     Route: 065
     Dates: start: 20071204
  3. RITUXIMAB [Suspect]
     Route: 065
     Dates: start: 20080909
  4. RITUXIMAB [Suspect]
     Route: 065
     Dates: start: 20090713
  5. RITUXIMAB [Suspect]
     Route: 065
     Dates: start: 20111026
  6. RITUXIMAB [Suspect]
     Route: 065
     Dates: start: 20120620
  7. METHOTREXATE [Concomitant]
     Indication: RHEUMATOID ARTHRITIS
     Route: 065
     Dates: start: 200204
  8. METHOTREXATE [Concomitant]
     Route: 065
  9. LEFLUNOMIDE [Concomitant]
     Indication: RHEUMATOID ARTHRITIS
     Route: 065

REACTIONS (1)
  - Cholelithiasis [Recovered/Resolved]
